FAERS Safety Report 7368698-6 (Version None)
Quarter: 2011Q1

REPORT INFORMATION
  Report Type: 
  Country: None (occurrence: None)
  Receive Date: 20110323
  Receipt Date: 20100806
  Transmission Date: 20110831
  Serious: No
  Sender: FDA-Public Use
  Company Number: US-BAYER-201032647NA

PATIENT
  Sex: Female

DRUGS (2)
  1. MIRENA [Suspect]
     Dosage: 20 MCG/24HR, CONT
     Route: 015
     Dates: start: 20100804
  2. TYLENOL W/ CODEINE NO. 3 [Suspect]
     Indication: ABDOMINAL PAIN

REACTIONS (1)
  - ABDOMINAL PAIN LOWER [None]
